FAERS Safety Report 21285261 (Version 1)
Quarter: 2022Q3

REPORT INFORMATION
  Report Type: Spontaneous
  Country: US (occurrence: None)
  Receive Date: 20220901
  Receipt Date: 20220901
  Transmission Date: 20221026
  Serious: No
  Sender: FDA-Public Use
  Company Number: None

PATIENT
  Age: 74 Year
  Sex: Female

DRUGS (11)
  1. VERZENIO [Suspect]
     Active Substance: ABEMACICLIB
     Indication: Breast cancer female
     Dosage: FREQUENCY : TWICE A DAY;?
     Route: 048
  2. ELIQUIS [Concomitant]
  3. IBANDRONATE [Concomitant]
  4. IBUPROFEN [Concomitant]
     Active Substance: IBUPROFEN
  5. LETROZOLE [Concomitant]
  6. LIPITOR [Concomitant]
     Active Substance: ATORVASTATIN CALCIUM
  7. METHOCARBAMOL [Concomitant]
     Active Substance: METHOCARBAMOL
  8. PROAIR HFA [Concomitant]
  9. RESTASIS [Concomitant]
  10. ROSUVASTATIN [Concomitant]
     Active Substance: ROSUVASTATIN
  11. TRAMADOL [Concomitant]

REACTIONS (1)
  - Disease progression [None]
